FAERS Safety Report 8344370-0 (Version None)
Quarter: 2012Q2

REPORT INFORMATION
  Report Type: 
  Country: None (occurrence: None)
  Receive Date: 20120508
  Receipt Date: 20120416
  Transmission Date: 20120825
  Serious: Yes (Death, Life-Threatening, Hospitalization, Other)
  Sender: FDA-Public Use
  Company Number: IL-ROCHE-740282

PATIENT
  Sex: Female
  Weight: 55 kg

DRUGS (12)
  1. HERCEPTIN [Suspect]
     Dosage: MAINTENANCE DOSE. DATE OF LAST DOSE PRIOR TO SAE: 25 OCT 2010, FORM: VIAL, DOSE LEVEL: 6 MG/KG
     Route: 042
  2. CARBOPLATIN [Suspect]
     Indication: BREAST CANCER
     Dosage: DATE OF LAST DOSE PRIOR TO SAE: 25 OCT 2010, FORM: VIAL, DOSE LEVEL: 5 AUC.
     Route: 042
  3. AVASTIN [Suspect]
     Indication: BREAST CANCER
     Dosage: DATE OF LAST DOSE PRIOR TO SAE: 25 OCT 2010, FORM: VIAL, DOSE LEVEL: 15 MG/KG.
     Route: 042
  4. HERCEPTIN [Suspect]
     Indication: BREAST CANCER
     Dosage: LOADING DOSE: 8 MG/KG ON DAY 1 OF CYCLE 1 ONLY. FORM: VIAL
     Route: 042
  5. MICROPIRIN [Concomitant]
     Dosage: FREQUENCY: X 1
     Route: 048
  6. BONDORMIN [Concomitant]
     Dosage: FREQUENCY: X 1
     Route: 048
  7. DISOTHIAZIDE [Concomitant]
     Dosage: FREQUENCY: X 1
     Route: 048
  8. SIMVASTATIN [Concomitant]
     Dosage: FREQUENCY: X 1
     Route: 048
  9. DOCETAXEL [Suspect]
     Indication: BREAST CANCER
     Dosage: DATE OF LAST DOSE PRIOR TO SAE: 25 OCT 2010, FORM: VIAL, DOSE LEVEL: 75 MG/M2.
     Route: 042
  10. RECITAL [Concomitant]
     Dosage: FREQUENCY: X 1
     Route: 048
  11. OMEPRAZOLE [Concomitant]
     Dosage: FREQUENCY: X 2
     Route: 048
  12. RAMIPRIL [Concomitant]
     Dosage: FREQUENCY: X 2
     Route: 048

REACTIONS (5)
  - MYOCARDIAL INFARCTION [None]
  - UROSEPSIS [None]
  - CEREBRAL HAEMORRHAGE [None]
  - MULTI-ORGAN FAILURE [None]
  - NEUTROPENIA [None]
